FAERS Safety Report 18646445 (Version 2)
Quarter: 2021Q1

REPORT INFORMATION
  Report Type: Other
  Country: US (occurrence: US)
  Receive Date: 20201221
  Receipt Date: 20210108
  Transmission Date: 20210419
  Serious: Yes (Death)
  Sender: FDA-Public Use
  Company Number: US-ACORDA-ACO_166711_2020

PATIENT
  Sex: Female

DRUGS (2)
  1. INBRIJA [Suspect]
     Active Substance: LEVODOPA
     Indication: ON AND OFF PHENOMENON
  2. INBRIJA [Suspect]
     Active Substance: LEVODOPA
     Indication: PARKINSON^S DISEASE
     Dosage: 84 MILLIGRAM, PRN, NOT TO EXCEED 5 DOSES PER DAY

REACTIONS (7)
  - Parkinson^s disease [Fatal]
  - Cough [Unknown]
  - Dry mouth [Unknown]
  - Device difficult to use [Unknown]
  - Dry throat [Unknown]
  - Product residue present [Unknown]
  - Ill-defined disorder [Unknown]
